FAERS Safety Report 7205097-1 (Version None)
Quarter: 2010Q4

REPORT INFORMATION
  Report Type: 
  Country: None (occurrence: None)
  Receive Date: 20101230
  Receipt Date: 20101227
  Transmission Date: 20110411
  Serious: Yes (Death)
  Sender: FDA-Public Use
  Company Number: US-AMGEN-USASP2010009254

PATIENT

DRUGS (8)
  1. NPLATE [Suspect]
     Indication: IDIOPATHIC THROMBOCYTOPENIC PURPURA
     Dosage: 750 A?G, UNK
     Dates: start: 20091027, end: 20100819
  2. NPLATE [Suspect]
     Indication: BILE DUCT CANCER
  3. PREDNISONE [Concomitant]
  4. GEMZAR [Concomitant]
     Dosage: UNK
     Dates: start: 20100624, end: 20100803
  5. XELODA [Concomitant]
     Dosage: 2000 MG, BID
     Dates: start: 20100824
  6. VITAMIN B6 [Concomitant]
     Dosage: 400 MG, BID
     Dates: start: 20100824
  7. ALOXI [Concomitant]
  8. DECADRON [Concomitant]

REACTIONS (1)
  - METASTATIC NEOPLASM [None]
